FAERS Safety Report 21024850 (Version 1)
Quarter: 2022Q2

REPORT INFORMATION
  Report Type: Report from Study
  Country: CH (occurrence: None)
  Receive Date: 20220629
  Receipt Date: 20220629
  Transmission Date: 20220721
  Serious: Yes (Hospitalization)
  Sender: FDA-Public Use
  Company Number: CH-ROCHE-3088292

PATIENT
  Age: 69 Year
  Sex: Male
  Weight: 102 kg

DRUGS (53)
  1. ATEZOLIZUMAB [Suspect]
     Active Substance: ATEZOLIZUMAB
     Indication: Non-small cell lung cancer
     Dosage: DATE OF MOST RECENT DOSE OF STUDY DRUG PRIOR TO SAE 12-APR-2022
     Route: 042
     Dates: start: 20201007
  2. ATEZOLIZUMAB [Suspect]
     Active Substance: ATEZOLIZUMAB
     Indication: Non-small cell lung cancer
     Dosage: START DATE OF MOST RECENT DOSE OF STUDY DRUG PRIOR TO SAE WAS GIVEN ON 12/APR/2022
     Route: 042
     Dates: start: 20210607
  3. CARBOPLATIN [Suspect]
     Active Substance: CARBOPLATIN
     Indication: Non-small cell lung cancer
     Route: 042
     Dates: start: 20201007
  4. PEMETREXED [Suspect]
     Active Substance: PEMETREXED
     Indication: Non-small cell lung cancer
     Route: 042
     Dates: start: 20201007
  5. ALDACTONE [Concomitant]
     Active Substance: SPIRONOLACTONE
     Indication: Hypertension
     Route: 048
  6. CRESTOR [Concomitant]
     Active Substance: ROSUVASTATIN CALCIUM
     Indication: Hypercholesterolaemia
     Route: 048
  7. ESOMEPRAZOLE [Concomitant]
     Active Substance: ESOMEPRAZOLE
     Indication: Gastrointestinal disorder prophylaxis
     Route: 048
     Dates: end: 20210127
  8. DAPAGLIFLOZIN [Concomitant]
     Active Substance: DAPAGLIFLOZIN
     Indication: Diabetes mellitus
     Route: 048
  9. GLUCOPHAGE [Concomitant]
     Active Substance: METFORMIN HYDROCHLORIDE
     Indication: Diabetes mellitus
     Route: 048
  10. XULTOPHY 100/3.6 [Concomitant]
     Active Substance: INSULIN DEGLUDEC\LIRAGLUTIDE
     Indication: Diabetes mellitus
     Route: 058
  11. PRADIF T [Concomitant]
     Active Substance: TAMSULOSIN HYDROCHLORIDE
     Indication: Benign prostatic hyperplasia
     Dosage: 400 UG
     Route: 048
  12. ZESTRIL [Concomitant]
     Active Substance: LISINOPRIL
     Indication: Hypertension
     Route: 048
     Dates: start: 20200917
  13. ANDREAFOL [Concomitant]
     Route: 048
     Dates: start: 20200929, end: 20210121
  14. MOTILIUM [Concomitant]
     Active Substance: DOMPERIDONE
     Indication: Nausea
     Route: 048
     Dates: start: 20201007
  15. VAXIGRIPTETRA [Concomitant]
     Active Substance: INFLUENZA VIRUS VACCINE QUADRIVALENT TYPE A+B
     Dosage: 1 AMPULE
     Route: 030
     Dates: start: 20201013, end: 20201013
  16. DEXAMETHASONE [Concomitant]
     Active Substance: DEXAMETHASONE
     Indication: Premedication
     Route: 042
     Dates: start: 20201007, end: 20201007
  17. DEXAMETHASONE [Concomitant]
     Active Substance: DEXAMETHASONE
     Route: 042
     Dates: start: 20201027, end: 20201027
  18. DEXAMETHASONE [Concomitant]
     Active Substance: DEXAMETHASONE
     Route: 042
     Dates: start: 20201130, end: 20201130
  19. DEXAMETHASONE [Concomitant]
     Active Substance: DEXAMETHASONE
     Route: 042
     Dates: start: 20201221, end: 20201221
  20. AKYNZEO [Concomitant]
     Indication: Premedication
     Route: 048
     Dates: start: 20201007, end: 20201007
  21. AKYNZEO [Concomitant]
     Route: 048
     Dates: start: 20201027, end: 20201027
  22. AKYNZEO [Concomitant]
     Route: 048
     Dates: start: 20201130, end: 20201130
  23. AKYNZEO [Concomitant]
     Route: 048
     Dates: start: 20201221, end: 20201221
  24. ZOLPIDEM [Concomitant]
     Active Substance: ZOLPIDEM TARTRATE
     Route: 048
     Dates: start: 20201023
  25. BECOZYME FORTE [Concomitant]
     Indication: Alcohol abuse
     Route: 048
     Dates: start: 20201215
  26. NEULASTA [Concomitant]
     Active Substance: PEGFILGRASTIM
     Indication: Neutropenia
     Route: 058
     Dates: start: 20201215, end: 20201215
  27. NEULASTA [Concomitant]
     Active Substance: PEGFILGRASTIM
     Route: 058
     Dates: start: 20210104, end: 20210104
  28. ARANESP [Concomitant]
     Active Substance: DARBEPOETIN ALFA
     Indication: Anaemia
     Dosage: 500 UG
     Route: 058
     Dates: start: 20201215, end: 20201215
  29. ARANESP [Concomitant]
     Active Substance: DARBEPOETIN ALFA
     Dosage: 500 UG
     Route: 058
     Dates: start: 20201027, end: 20201027
  30. ARANESP [Concomitant]
     Active Substance: DARBEPOETIN ALFA
     Dosage: 500 UG
     Route: 058
     Dates: start: 20210104, end: 20210104
  31. ONDANSETRON [Concomitant]
     Active Substance: ONDANSETRON
     Indication: Premedication
     Route: 042
     Dates: start: 20201221, end: 20201221
  32. FERINJECT [Concomitant]
     Active Substance: FERRIC CARBOXYMALTOSE
     Indication: Anaemia
     Route: 042
     Dates: start: 20210112, end: 20210112
  33. PFIZER-BIONTECH COVID-19 VACCINE [Concomitant]
     Active Substance: TOZINAMERAN
     Indication: COVID-19 immunisation
     Dosage: 1 OTHER
     Route: 030
     Dates: start: 20210113, end: 20210113
  34. PFIZER-BIONTECH COVID-19 VACCINE [Concomitant]
     Active Substance: TOZINAMERAN
     Dosage: 1 OTHER
     Route: 030
     Dates: start: 20210203, end: 20210203
  35. EPREX [Concomitant]
     Active Substance: ERYTHROPOIETIN
     Route: 058
     Dates: start: 20210113, end: 20210113
  36. FOLIC ACID [Concomitant]
     Active Substance: FOLIC ACID
     Route: 048
     Dates: start: 20210113, end: 20210121
  37. HEPARIN [Concomitant]
     Active Substance: HEPARIN SODIUM
     Indication: Surgery
     Dates: start: 20210121, end: 20210126
  38. KCL HAUSMANN RETARD [Concomitant]
     Route: 048
     Dates: start: 20210125, end: 20210126
  39. MOVICOL [Concomitant]
     Active Substance: POLYETHYLENE GLYCOL 3350\POTASSIUM CHLORIDE\SODIUM BICARBONATE\SODIUM CHLORIDE
     Indication: Constipation
     Dosage: 1 OTHER
     Route: 048
     Dates: start: 20210124, end: 20210124
  40. FRAGMIN [Concomitant]
     Active Substance: DALTEPARIN SODIUM
     Indication: Surgery
     Route: 058
     Dates: start: 20210126, end: 20210126
  41. TORSEMIDE [Concomitant]
     Active Substance: TORSEMIDE
     Dates: start: 20210123, end: 20210126
  42. LASIX [Concomitant]
     Active Substance: FUROSEMIDE
     Dates: start: 20210124, end: 20210125
  43. NOREPINEPHRINE [Concomitant]
     Active Substance: NOREPINEPHRINE
     Indication: Surgery
     Dates: start: 20210121, end: 20210122
  44. ZINACEF [Concomitant]
     Active Substance: CEFUROXIME SODIUM
     Indication: Surgery
     Route: 042
     Dates: start: 20210122, end: 20210122
  45. NOVALGIN (METAMIZOLE SODIUM) [Concomitant]
     Active Substance: METAMIZOLE SODIUM
     Indication: Surgery
     Dates: start: 20210122, end: 20210124
  46. TEMESTA [Concomitant]
     Route: 048
     Dates: start: 20210124, end: 20210124
  47. METAMIZOLE [Concomitant]
     Active Substance: METAMIZOLE
     Indication: Surgery
     Dates: start: 20210122, end: 20210122
  48. ROPIVACAINE [Concomitant]
     Active Substance: ROPIVACAINE
     Indication: Surgery
     Dates: start: 20210121, end: 20210123
  49. ALBUTEROL SULFATE\IPRATROPIUM BROMIDE [Concomitant]
     Active Substance: ALBUTEROL SULFATE\IPRATROPIUM BROMIDE
     Dosage: 1 AMPULE
     Route: 055
     Dates: start: 20210122
  50. TORSEMIDE [Concomitant]
     Active Substance: TORSEMIDE
     Indication: Ascites
     Route: 048
     Dates: start: 20210206
  51. CLEMASTINE FUMARATE [Concomitant]
     Active Substance: CLEMASTINE FUMARATE
     Indication: Swelling face
     Route: 042
     Dates: start: 20210719, end: 20210719
  52. CLEMASTINE FUMARATE [Concomitant]
     Active Substance: CLEMASTINE FUMARATE
     Indication: Swelling face
     Route: 048
     Dates: start: 20210720, end: 20210723
  53. NEOMYCIN [Concomitant]
     Active Substance: NEOMYCIN
     Indication: Surgery
     Route: 042
     Dates: start: 20210121, end: 20210121

REACTIONS (2)
  - Lower limb fracture [Not Recovered/Not Resolved]
  - Spinal fracture [Not Recovered/Not Resolved]

NARRATIVE: CASE EVENT DATE: 20220426
